FAERS Safety Report 23157031 (Version 1)
Quarter: 2023Q4

REPORT INFORMATION
  Report Type: Spontaneous
  Country: GB (occurrence: GB)
  Receive Date: 20231108
  Receipt Date: 20231108
  Transmission Date: 20240110
  Serious: Yes (Other)
  Sender: FDA-Public Use
  Company Number: None

PATIENT
  Age: 88 Year
  Sex: Female
  Weight: 98 kg

DRUGS (19)
  1. RAMIPRIL [Suspect]
     Active Substance: RAMIPRIL
     Indication: Ill-defined disorder
     Dates: start: 20230922
  2. ANGITIL [Concomitant]
     Dosage: (BRAND OF DILTIAZEM)
     Dates: start: 20230713, end: 20231019
  3. APIXABAN [Concomitant]
     Active Substance: APIXABAN
     Dates: start: 20230713
  4. ARIPIPRAZOLE [Concomitant]
     Active Substance: ARIPIPRAZOLE
     Dates: start: 20230713
  5. CETRABEN [Concomitant]
     Dosage: EMOLLIENT CREAM, USE AS DIRECTED
     Dates: start: 20230713
  6. AMOXICILLIN\CLAVULANATE POTASSIUM [Concomitant]
     Active Substance: AMOXICILLIN\CLAVULANATE POTASSIUM
     Indication: Cellulitis
     Dates: start: 20230831, end: 20230907
  7. FENBID [Concomitant]
     Dosage: TO PAINFUL AREA(S)
     Dates: start: 20230713
  8. FUROSEMIDE [Concomitant]
     Active Substance: FUROSEMIDE
     Dosage: TWO IN THE MORNING AND ONE AT LUNCHTIME
     Dates: start: 20230713
  9. HUMULIN L [Concomitant]
     Active Substance: INSULIN HUMAN
     Dosage: 14 UNITS IN THE MORNING
     Dates: start: 20230713
  10. LINAGLIPTIN [Concomitant]
     Active Substance: LINAGLIPTIN
     Dates: start: 20230713
  11. NEFOPAM [Concomitant]
     Active Substance: NEFOPAM
     Dates: start: 20230713, end: 20231024
  12. OLIVE OIL [Concomitant]
     Active Substance: OLIVE OIL
     Dosage: USE AS DIRECTED
     Dates: start: 20230713
  13. OMEPRAZOLE [Concomitant]
     Active Substance: OMEPRAZOLE
     Dates: start: 20230713
  14. ACETAMINOPHEN [Concomitant]
     Active Substance: ACETAMINOPHEN
     Dosage: TAKE ONE OR TWO TABLETS UP TO FOUR TIMES A DAY ...
     Dates: start: 20230713
  15. CALCIUM CARBONATE\SODIUM ALGINATE\SODIUM BICARBONATE [Concomitant]
     Active Substance: CALCIUM CARBONATE\SODIUM ALGINATE\SODIUM BICARBONATE
     Dosage: TAKE 5ML TO 10ML FOUR TIMES A DAY (AFTER FOOD A...
     Dates: start: 20230920, end: 20231018
  16. RAMIPRIL [Concomitant]
     Active Substance: RAMIPRIL
     Dates: start: 20230713, end: 20231019
  17. ALBUTEROL [Concomitant]
     Active Substance: ALBUTEROL
     Route: 055
     Dates: start: 20230713
  18. ISOSORBIDE MONONITRATE [Concomitant]
     Active Substance: ISOSORBIDE MONONITRATE
     Dosage: EACH MORNING (BRAND OF ISOSORBI...
     Dates: start: 20231024
  19. VITAMIN D3 [Concomitant]
     Active Substance: CHOLECALCIFEROL
     Dosage: CONTAINS COLECALCIFEROL.
     Dates: start: 20230713

REACTIONS (1)
  - Anaphylactic reaction [Unknown]
